FAERS Safety Report 24417824 (Version 4)
Quarter: 2024Q4

REPORT INFORMATION
  Report Type: Spontaneous
  Country: US (occurrence: US)
  Receive Date: 20241009
  Receipt Date: 20241202
  Transmission Date: 20250115
  Serious: Yes (Other)
  Sender: PFIZER
  Company Number: US-PFIZER INC-202400272413

PATIENT
  Age: 51 Year
  Sex: Female

DRUGS (3)
  1. TIVDAK [Suspect]
     Active Substance: TISOTUMAB VEDOTIN-TFTV
     Indication: Cervix carcinoma
     Dosage: DISPENSED VIA IV (INTRAVENOUS) AT 127 MG EVERY THREE WEEKS
     Route: 042
  2. TIVDAK [Suspect]
     Active Substance: TISOTUMAB VEDOTIN-TFTV
     Dosage: 114MG INFUSION, EVERY 3 WEEKS
     Dates: start: 202409
  3. TIVDAK [Suspect]
     Active Substance: TISOTUMAB VEDOTIN-TFTV
     Dosage: 114MG INFUSION, EVERY 3 WEEKS
     Dates: start: 202408

REACTIONS (1)
  - Weight decreased [Not Recovered/Not Resolved]
